FAERS Safety Report 22930358 (Version 3)
Quarter: 2024Q1

REPORT INFORMATION
  Report Type: Report from Study
  Country: US (occurrence: US)
  Receive Date: 20230911
  Receipt Date: 20240206
  Transmission Date: 20240409
  Serious: Yes (Disabling, Other)
  Sender: FDA-Public Use
  Company Number: US-HORIZON THERAPEUTICS-HZN-2023-001551

PATIENT

DRUGS (23)
  1. TEPEZZA [Suspect]
     Active Substance: TEPROTUMUMAB-TRBW
     Indication: Endocrine ophthalmopathy
     Dosage: FIRST INFUSION
     Route: 042
     Dates: start: 20221227, end: 20221227
  2. TEPEZZA [Suspect]
     Active Substance: TEPROTUMUMAB-TRBW
     Indication: Graves^ disease
     Dosage: SECOND INFUSION
     Route: 042
     Dates: start: 20230118, end: 20230118
  3. TEPEZZA [Suspect]
     Active Substance: TEPROTUMUMAB-TRBW
     Indication: Radioimmunotherapy
     Dosage: THIRD INFUSION
     Route: 042
     Dates: start: 20230208, end: 20230208
  4. ALBUTEROL [Concomitant]
     Active Substance: ALBUTEROL
     Dosage: 2.5 MG/3ML
  5. PROBIOTICS NOS [Concomitant]
     Active Substance: PROBIOTICS NOS
  6. ACETAMINOPHEN [Concomitant]
     Active Substance: ACETAMINOPHEN
     Dosage: UNK
     Dates: start: 20221227
  7. VITAMIN D3 [Concomitant]
     Active Substance: CHOLECALCIFEROL
  8. VITAMIN E [Concomitant]
     Active Substance: .ALPHA.-TOCOPHEROL
  9. MOTRIN [Concomitant]
     Active Substance: IBUPROFEN
  10. SYNTHROID [Concomitant]
     Active Substance: LEVOTHYROXINE SODIUM
  11. TEMOVATE [Concomitant]
     Active Substance: CLOBETASOL PROPIONATE
  12. MICROZIDE [Concomitant]
     Active Substance: HYDROCHLOROTHIAZIDE
  13. COZAAR [Concomitant]
     Active Substance: LOSARTAN POTASSIUM
  14. CRESTOR [Concomitant]
     Active Substance: ROSUVASTATIN CALCIUM
  15. SINGULAIR [Concomitant]
     Active Substance: MONTELUKAST SODIUM
  16. FLONASE [Concomitant]
     Active Substance: FLUTICASONE PROPIONATE
  17. O2  gas [Concomitant]
  18. HERBALS\TURMERIC [Concomitant]
     Active Substance: HERBALS\TURMERIC
  19. EPIPEN-JR [Concomitant]
     Dosage: 0.15 MG/0.3ML
  20. SOLU-MEDROL [Concomitant]
     Active Substance: METHYLPREDNISOLONE SODIUM SUCCINATE
  21. ZYRTEC [Concomitant]
     Active Substance: CETIRIZINE HYDROCHLORIDE
  22. CELEBREX [Concomitant]
     Active Substance: CELECOXIB
  23. SELENIUM [Concomitant]
     Active Substance: SELENIUM
     Route: 048

REACTIONS (27)
  - Deafness permanent [Unknown]
  - Physical disability [Unknown]
  - Disability [Unknown]
  - Dyspepsia [Unknown]
  - Hypoacusis [Unknown]
  - Taste disorder [Unknown]
  - Pain [Unknown]
  - Injury [Unknown]
  - Anxiety [Unknown]
  - Concomitant disease aggravated [Unknown]
  - Discomfort [Unknown]
  - Impaired quality of life [Unknown]
  - Emotional distress [Unknown]
  - Auditory disorder [Unknown]
  - Product quality issue [Unknown]
  - Economic problem [Unknown]
  - Blood pressure increased [Unknown]
  - Epistaxis [Unknown]
  - Dyspepsia [Unknown]
  - Dry mouth [Unknown]
  - Sinus disorder [Unknown]
  - Abdominal pain [Unknown]
  - Palpitations [Unknown]
  - Taste disorder [Recovering/Resolving]
  - Tinnitus [Unknown]
  - Fatigue [Unknown]
  - Muscle spasms [Unknown]
